FAERS Safety Report 4691181-3 (Version None)
Quarter: 2005Q2

REPORT INFORMATION
  Report Type: 
  Country: None (occurrence: None)
  Receive Date: 20050615
  Receipt Date: 20050609
  Transmission Date: 20051028
  Serious: Yes (Hospitalization)
  Sender: FDA-Public Use
  Company Number: PHHO2005JP09265

PATIENT
  Age: 76 Year
  Sex: Female
  Weight: 54 kg

DRUGS (10)
  1. DIOVAN [Suspect]
     Indication: HYPERTENSION
     Dosage: 80 MG, QD
     Route: 048
     Dates: start: 20040318
  2. ODRIK [Suspect]
     Indication: HYPERTENSION
     Route: 048
     Dates: start: 19970421
  3. LASIX [Suspect]
     Indication: GLOMERULONEPHRITIS MEMBRANOUS
     Route: 048
     Dates: start: 20000330
  4. MUNOBAL [Suspect]
     Indication: HYPERTENSION
     Route: 048
     Dates: start: 19970421
  5. CEROCRAL [Concomitant]
     Indication: CEREBRAL INFARCTION
  6. MEVALOTIN [Concomitant]
     Indication: HYPERCHOLESTEROLAEMIA
     Dates: end: 20041014
  7. BAYASPIRIN [Concomitant]
     Indication: TRANSIENT ISCHAEMIC ATTACK
  8. PERSANTIN [Concomitant]
     Indication: GLOMERULONEPHRITIS MEMBRANOUS
  9. PREDONINE [Concomitant]
     Indication: GLOMERULONEPHRITIS MEMBRANOUS
  10. LIPOVAS [Concomitant]
     Indication: HYPERCHOLESTEROLAEMIA

REACTIONS (3)
  - DEPRESSED LEVEL OF CONSCIOUSNESS [None]
  - ORTHOSTATIC HYPOTENSION [None]
  - TRANSIENT ISCHAEMIC ATTACK [None]
